FAERS Safety Report 8352594-1 (Version None)
Quarter: 2012Q2

REPORT INFORMATION
  Report Type: 
  Country: None (occurrence: None)
  Receive Date: 20120511
  Receipt Date: 20120409
  Transmission Date: 20120825
  Serious: No
  Sender: FDA-Public Use
  Company Number: US-COVIDIEN/TYCO HEALTHCARE/MALLINCKRODT-T201201426

PATIENT
  Sex: Female

DRUGS (3)
  1. FENTANYL-100 [Suspect]
     Indication: PAIN
     Dosage: 50 UG/HR, Q72 HRS
     Route: 062
     Dates: start: 20120201, end: 20120201
  2. FENTANYL-100 [Suspect]
     Dosage: 100 UG/HR, Q72 HOURS (TWO 50 UG/HR PATCHES AT A TIME)
     Route: 062
     Dates: start: 20120201, end: 20120201
  3. HYDROCODONE BITARTRATE AND ACETAMINOPHEN [Concomitant]
     Indication: PROCEDURAL PAIN
     Dosage: 10-325 MG Q4 HRS
     Dates: end: 20120201

REACTIONS (3)
  - DRUG INEFFECTIVE [None]
  - AGITATION [None]
  - NIGHTMARE [None]
